FAERS Safety Report 24668625 (Version 1)
Quarter: 2024Q4

REPORT INFORMATION
  Report Type: Spontaneous
  Country: GB (occurrence: GB)
  Receive Date: 20241127
  Receipt Date: 20241127
  Transmission Date: 20250114
  Serious: Yes (Other)
  Sender: DR REDDYS
  Company Number: None

PATIENT
  Age: 73 Year
  Sex: Female

DRUGS (4)
  1. CAPECITABINE [Suspect]
     Active Substance: CAPECITABINE
     Indication: Oesophageal cancer metastatic
     Dosage: 2 CYCLE
  2. CAPECITABINE [Suspect]
     Active Substance: CAPECITABINE
     Indication: Oesophageal carcinoma
     Dosage: CYCLE OF COMBINATION CHEMOTHERAPY
  3. CAPECITABINE [Suspect]
     Active Substance: CAPECITABINE
     Dosage: ON SINGLE AGENT CAPECITABINE FOR ONE MORE CYCLE.
  4. OXALIPLATIN [Suspect]
     Active Substance: OXALIPLATIN
     Indication: Oesophageal carcinoma
     Dosage: CYCLE OF COMBINATION CHEMOTHERAPY

REACTIONS (3)
  - Subacute cutaneous lupus erythematosus [Recovered/Resolved]
  - Laryngospasm [Unknown]
  - Product use in unapproved indication [Unknown]
